FAERS Safety Report 8909327 (Version 1)
Quarter: 2012Q4

REPORT INFORMATION
  Report Type: 
  Country: US (occurrence: US)
  Receive Date: 20121114
  Receipt Date: 20121114
  Transmission Date: 20130627
  Serious: Yes (Death)
  Sender: FDA-Public Use
  Company Number: US-MYLANLABS-2012S1022960

PATIENT
  Sex: Male

DRUGS (18)
  1. SEROQUEL [Suspect]
     Indication: ANXIETY
     Route: 048
     Dates: start: 200907, end: 20090819
  2. SEROQUEL [Suspect]
     Indication: DEPRESSION
     Route: 048
     Dates: start: 200907, end: 20090819
  3. CITALOPRAM [Interacting]
     Indication: ANXIETY
     Route: 048
     Dates: start: 200907, end: 20090819
  4. CITALOPRAM [Interacting]
     Indication: DEPRESSION
     Route: 048
     Dates: start: 200907, end: 20090819
  5. ALPRAZOLAM [Interacting]
     Indication: ANXIETY
     Route: 048
     Dates: start: 200907, end: 20090819
  6. ALPRAZOLAM [Interacting]
     Indication: DEPRESSION
     Route: 048
     Dates: start: 200907, end: 20090819
  7. MIRTAZAPINE [Interacting]
     Indication: ANXIETY
     Route: 048
     Dates: start: 200907, end: 20090819
  8. MIRTAZAPINE [Interacting]
     Indication: DEPRESSION
     Route: 048
     Dates: start: 200907, end: 20090819
  9. CLONAZEPAM [Interacting]
     Indication: ANXIETY
     Route: 048
     Dates: start: 200907, end: 20090819
  10. CLONAZEPAM [Interacting]
     Indication: DEPRESSION
     Route: 048
     Dates: start: 200907, end: 20090819
  11. TRAZODONE [Interacting]
     Indication: ANXIETY
     Route: 048
     Dates: start: 200907, end: 20090819
  12. TRAZODONE [Interacting]
     Indication: DEPRESSION
     Route: 048
     Dates: start: 200907, end: 20090819
  13. DIAZEPAM [Interacting]
     Indication: ANXIETY
     Route: 048
     Dates: start: 200907, end: 20090819
  14. DIAZEPAM [Interacting]
     Indication: DEPRESSION
     Route: 048
     Dates: start: 200907, end: 20090819
  15. TEMAZEPAM [Interacting]
     Indication: ANXIETY
     Route: 048
     Dates: start: 200907, end: 20090819
  16. TEMAZEPAM [Interacting]
     Indication: DEPRESSION
     Route: 048
     Dates: start: 200907, end: 20090819
  17. CHLORAL HYDRATE [Interacting]
     Indication: ANXIETY
     Route: 048
     Dates: start: 200907, end: 20090819
  18. CHLORAL HYDRATE [Interacting]
     Indication: DEPRESSION
     Route: 048
     Dates: start: 200907, end: 20090819

REACTIONS (2)
  - Completed suicide [Fatal]
  - Drug interaction [Fatal]
